FAERS Safety Report 19651998 (Version 1)
Quarter: 2021Q3

REPORT INFORMATION
  Report Type: Spontaneous
  Country: US (occurrence: US)
  Receive Date: 20210803
  Receipt Date: 20210803
  Transmission Date: 20211014
  Serious: Yes (Other)
  Sender: FDA-Public Use
  Company Number: None

PATIENT
  Age: 86 Year
  Sex: Male
  Weight: 60.3 kg

DRUGS (1)
  1. NEOMYCIN?POLYMYXIN B?DEXAMETHASONE [Suspect]
     Active Substance: DEXAMETHASONE\NEOMYCIN\POLYMYXIN B
     Indication: EYE INFECTION
     Dosage: ?          QUANTITY:1 DROP(S);?
     Route: 047
     Dates: start: 20210715, end: 20210731

REACTIONS (5)
  - Dry eye [None]
  - Eye inflammation [None]
  - Ocular hyperaemia [None]
  - Eyelid ptosis [None]
  - Eye irritation [None]

NARRATIVE: CASE EVENT DATE: 20210801
